FAERS Safety Report 8304774-9 (Version None)
Quarter: 2012Q2

REPORT INFORMATION
  Report Type: 
  Country: None (occurrence: None)
  Receive Date: 20120423
  Receipt Date: 20120412
  Transmission Date: 20120825
  Serious: Yes (Hospitalization)
  Sender: FDA-Public Use
  Company Number: US-VERTEX PHARMACEUTICALS INC.-AE-2012-005260

PATIENT
  Sex: Male
  Weight: 90.8 kg

DRUGS (6)
  1. PEGASYS [Concomitant]
     Route: 058
     Dates: start: 20120405
  2. RIBAVIRIN [Concomitant]
     Indication: HEPATITIS C
     Dates: start: 20120129, end: 20120402
  3. RIBAVIRIN [Concomitant]
     Route: 048
     Dates: start: 20120405
  4. PEGASYS [Concomitant]
     Indication: HEPATITIS C
     Route: 058
     Dates: start: 20120129, end: 20120402
  5. INCIVEK [Suspect]
     Indication: HEPATITIS C
     Route: 048
     Dates: start: 20120129, end: 20120402
  6. INCIVEK [Suspect]
     Route: 048
     Dates: start: 20120405

REACTIONS (3)
  - WHITE BLOOD CELL COUNT DECREASED [None]
  - ASTHENIA [None]
  - NAUSEA [None]
